FAERS Safety Report 6193133-3 (Version None)
Quarter: 2009Q2

REPORT INFORMATION
  Report Type: 
  Country: None (occurrence: None)
  Receive Date: 20090514
  Receipt Date: 20090514
  Transmission Date: 20091009
  Serious: Yes (Other)
  Sender: FDA-Public Use
  Company Number: None

PATIENT
  Age: 51 Year
  Sex: Male
  Weight: 113.3993 kg

DRUGS (1)
  1. LORATADINE [Suspect]
     Indication: SEASONAL ALLERGY
     Dosage: 10MG  DAILY PO
     Route: 048

REACTIONS (4)
  - FUNGAL INFECTION [None]
  - OPEN WOUND [None]
  - PENILE INFECTION [None]
  - PHIMOSIS [None]
